FAERS Safety Report 8260661-6 (Version None)
Quarter: 2012Q2

REPORT INFORMATION
  Report Type: 
  Country: None (occurrence: None)
  Receive Date: 20120405
  Receipt Date: 20120323
  Transmission Date: 20120825
  Serious: Yes (Other)
  Sender: FDA-Public Use
  Company Number: TR-AMGEN-TURSP2012020055

PATIENT
  Age: 6 Year
  Sex: Male

DRUGS (1)
  1. ENBREL [Suspect]
     Indication: JUVENILE ARTHRITIS
     Dosage: 15 MG, WEEKLY
     Route: 058
     Dates: start: 20100402, end: 20120313

REACTIONS (6)
  - PAIN IN EXTREMITY [None]
  - JOINT STIFFNESS [None]
  - GAIT DISTURBANCE [None]
  - DRUG DEPENDENCE [None]
  - ARTHRALGIA [None]
  - BONE PAIN [None]
